FAERS Safety Report 16709615 (Version 1)
Quarter: 2019Q3

REPORT INFORMATION
  Report Type: Spontaneous
  Country: US (occurrence: US)
  Receive Date: 20190816
  Receipt Date: 20190816
  Transmission Date: 20191004
  Serious: Yes (Other)
  Sender: FDA-Public Use
  Company Number: US-BIOGEN-2019BI00775490

PATIENT
  Age: 42 Year
  Sex: Female

DRUGS (1)
  1. TECFIDERA [Suspect]
     Active Substance: DIMETHYL FUMARATE
     Indication: MULTIPLE SCLEROSIS
     Route: 065
     Dates: start: 20190124

REACTIONS (8)
  - Lymphocyte count decreased [Unknown]
  - Memory impairment [Unknown]
  - Cerebral atrophy [Unknown]
  - Dyschromatopsia [Unknown]
  - Muscular weakness [Unknown]
  - Optic neuritis [Unknown]
  - General physical health deterioration [Unknown]
  - Urticaria [Unknown]

NARRATIVE: CASE EVENT DATE: 20190725
